FAERS Safety Report 22078738 (Version 1)
Quarter: 2023Q1

REPORT INFORMATION
  Report Type: Spontaneous
  Country: CN (occurrence: CN)
  Receive Date: 20230309
  Receipt Date: 20230309
  Transmission Date: 20230417
  Serious: Yes (Other)
  Sender: FDA-Public Use
  Company Number: CN-PFIZER INC-PV202300042543

PATIENT
  Age: 65 Year
  Sex: Male

DRUGS (2)
  1. IRINOTECAN HYDROCHLORIDE [Interacting]
     Active Substance: IRINOTECAN HYDROCHLORIDE
     Dosage: UNK
     Route: 041
     Dates: start: 20210113
  2. FLUOROURACIL [Interacting]
     Active Substance: FLUOROURACIL
     Dosage: UNK
     Dates: start: 20210113

REACTIONS (2)
  - Drug interaction [Unknown]
  - Vascular device occlusion [Unknown]
